FAERS Safety Report 14381537 (Version 1)
Quarter: 2018Q1

REPORT INFORMATION
  Report Type: Other
  Country: US (occurrence: US)
  Receive Date: 20180112
  Receipt Date: 20180112
  Transmission Date: 20180509
  Serious: Yes (Death)
  Sender: FDA-Public Use
  Company Number: US-GENUS_LIFESCIENCES-USA-POI0580201800013

PATIENT
  Age: 16 Year
  Sex: Male

DRUGS (8)
  1. ACETAMINOPHEN WITH HYDROCODONE [Suspect]
     Active Substance: ACETAMINOPHEN\HYDROCODONE
     Dates: end: 2016
  2. OXYCODONE [Suspect]
     Active Substance: OXYCODONE
     Dates: end: 2016
  3. LORAZEPAM. [Suspect]
     Active Substance: LORAZEPAM
     Dates: end: 2016
  4. ALCOHOL. [Suspect]
     Active Substance: ALCOHOL
     Dates: end: 2016
  5. OXYCODONE HCL CAPSULES [Suspect]
     Active Substance: OXYCODONE HYDROCHLORIDE
     Dates: end: 2016
  6. ACETAMINOPHEN WITH OXYCODONE [Suspect]
     Active Substance: ACETAMINOPHEN\OXYCODONE HYDROCHLORIDE
     Dates: end: 2016
  7. MORPHINE [Suspect]
     Active Substance: MORPHINE
     Dates: end: 2016
  8. SKELETAL MUSCLE RELAXANT [Suspect]
     Active Substance: UNSPECIFIED INGREDIENT
     Dates: end: 2016

REACTIONS (1)
  - Completed suicide [Fatal]

NARRATIVE: CASE EVENT DATE: 2016
